FAERS Safety Report 9271442 (Version 2)
Quarter: 2013Q2

REPORT INFORMATION
  Report Type: Spontaneous
  Country: US (occurrence: US)
  Receive Date: 20130506
  Receipt Date: 20130617
  Transmission Date: 20140414
  Serious: No
  Sender: FDA-Public Use
  Company Number: US-PFIZER INC-2013136342

PATIENT
  Age: 65 Year
  Sex: Female
  Weight: 41.27 kg

DRUGS (5)
  1. NICOTROL INHALER [Suspect]
     Indication: SMOKING CESSATION THERAPY
     Dosage: UNK, AS NEEDED
     Dates: start: 20130405, end: 20130419
  2. CLONAZEPAM [Concomitant]
     Indication: DEPRESSION
     Dosage: 1 MG, 2X/DAY
  3. FLUOXETINE [Concomitant]
     Indication: DEPRESSION
     Dosage: 30 MG, DAILY
  4. GABAPENTIN [Concomitant]
     Indication: NEUROPATHY PERIPHERAL
     Dosage: 600 MG, 5X/DAY
  5. GABAPENTIN [Concomitant]
     Dosage: 600 MG, 3X/DAY

REACTIONS (6)
  - Blood glucose decreased [Unknown]
  - Blood sodium decreased [Unknown]
  - Rash generalised [Recovering/Resolving]
  - Pruritus generalised [Recovering/Resolving]
  - Skin papilloma [Unknown]
  - Erythema [Unknown]
